FAERS Safety Report 8190670-7 (Version None)
Quarter: 2012Q1

REPORT INFORMATION
  Report Type: 
  Country: None (occurrence: None)
  Receive Date: 20120307
  Receipt Date: 20120228
  Transmission Date: 20120608
  Serious: Yes (Other)
  Sender: FDA-Public Use
  Company Number: RU-BAYER-2012-015933

PATIENT
  Age: 44 Year
  Sex: Female

DRUGS (1)
  1. MIRENA [Suspect]
     Dosage: UNK
     Route: 015
     Dates: start: 20070101, end: 20110901

REACTIONS (5)
  - HYPOMENORRHOEA [None]
  - VAGINAL HAEMORRHAGE [None]
  - CERVICAL DYSPLASIA [None]
  - ENDOMETRIAL HYPERTROPHY [None]
  - UTERINE CANCER [None]
